FAERS Safety Report 8860607 (Version 2)
Quarter: 2012Q4

REPORT INFORMATION
  Report Type: 
  Country: US (occurrence: US)
  Receive Date: 20121025
  Receipt Date: 20121227
  Transmission Date: 20130627
  Serious: No
  Sender: FDA-Public Use
  Company Number: US-009507513-1210USA007417

PATIENT
  Sex: Female

DRUGS (2)
  1. SINGULAIR [Suspect]
     Indication: HYPERSENSITIVITY
     Dosage: UNK
     Route: 048
     Dates: start: 2008
  2. CETIRIZIN [Concomitant]

REACTIONS (1)
  - Lactose intolerance [Recovered/Resolved]
